FAERS Safety Report 8290754-9 (Version None)
Quarter: 2012Q2

REPORT INFORMATION
  Report Type: 
  Country: None (occurrence: None)
  Receive Date: 20120417
  Receipt Date: 20120406
  Transmission Date: 20120825
  Serious: Yes (Hospitalization)
  Sender: FDA-Public Use
  Company Number: US-ACTELION-A-US2012-62876

PATIENT

DRUGS (3)
  1. EPOPROSTENOL SODIUM [Suspect]
     Dosage: 40 NG/KG, PER MIN
     Route: 042
     Dates: start: 20120313
  2. EPOPROSTENOL SODIUM [Suspect]
     Indication: PULMONARY ARTERIAL HYPERTENSION
     Dosage: 40 NG/KG, PER MIN
     Route: 042
     Dates: start: 20110810, end: 20120229
  3. LETAIRIS [Concomitant]

REACTIONS (2)
  - BIOPSY LUNG [None]
  - INTERSTITIAL LUNG DISEASE [None]
